FAERS Safety Report 7442464-5 (Version None)
Quarter: 2011Q2

REPORT INFORMATION
  Report Type: 
  Country: None (occurrence: None)
  Receive Date: 20110420
  Receipt Date: 20110416
  Transmission Date: 20111010
  Serious: Yes (Life-Threatening, Hospitalization, Other)
  Sender: FDA-Public Use
  Company Number: 2011030079

PATIENT
  Age: 60 Year
  Sex: Male

DRUGS (5)
  1. RESTORIL [Concomitant]
  2. ONSOLIS [Suspect]
     Indication: CANCER PAIN
     Dosage: TITRATE UP TO 4 FILMS/DOSE (200 MCG,UP TO 4 TIMES DAILY), BU; 2400 MCG (600 MCG,4 IN 1 D), BU;
     Route: 002
  3. PHENERGAN [Concomitant]
  4. EXALGO (HYDROMOPHONE HCL) [Concomitant]
  5. ZOFRAN [Concomitant]

REACTIONS (3)
  - KIDNEY INFECTION [None]
  - MYOCARDIAL INFARCTION [None]
  - PARALYSIS [None]
